FAERS Safety Report 18799185 (Version 2)
Quarter: 2022Q1

REPORT INFORMATION
  Report Type: Spontaneous
  Country: DE (occurrence: DE)
  Receive Date: 20210128
  Receipt Date: 20220215
  Transmission Date: 20220424
  Serious: Yes (Hospitalization, Other)
  Sender: FDA-Public Use
  Company Number: DE-EMBRYOTOX-201908533

PATIENT
  Age: 27 Year
  Sex: Female
  Weight: 67 kg

DRUGS (5)
  1. ESCITALOPRAM [Suspect]
     Active Substance: ESCITALOPRAM OXALATE
     Indication: Tension headache
     Dosage: 5 MILLIGRAM, DAILY
     Route: 048
     Dates: start: 20190615, end: 20190716
  2. GABAPENTIN [Suspect]
     Active Substance: GABAPENTIN
     Indication: Tension headache
     Dosage: 900 MILLIGRAM, DAILY, 900 [MG/D (300-0-600 MG) ]
     Route: 048
     Dates: start: 20190615, end: 20190716
  3. PROGESTERONE [Concomitant]
     Active Substance: PROGESTERONE
     Indication: Haemorrhage in pregnancy
     Dosage: 100 MILLIGRAM, BID, 200 [MG/D (100-0-100) ]
     Route: 067
     Dates: start: 20190730, end: 20190801
  4. PROGESTERONE [Concomitant]
     Active Substance: PROGESTERONE
     Indication: Haemorrhage in pregnancy
  5. EUTHYROX [Concomitant]
     Active Substance: LEVOTHYROXINE SODIUM
     Indication: Thyroid hormone replacement therapy
     Dosage: 150 [MCG/D (BIS 112 MCG/D) ] ()
     Route: 048
     Dates: start: 20190615, end: 20190910

REACTIONS (5)
  - Haemorrhage in pregnancy [Recovered/Resolved]
  - Retroplacental haematoma [Unknown]
  - Exposure during pregnancy [Unknown]
  - Hydrops foetalis [Unknown]
  - Oligohydramnios [Recovered/Resolved]
